FAERS Safety Report 10486042 (Version 1)
Quarter: 2014Q3

REPORT INFORMATION
  Report Type: Spontaneous
  Country: US (occurrence: None)
  Receive Date: 20140930
  Receipt Date: 20140930
  Transmission Date: 20150326
  Serious: Yes (Other)
  Sender: FDA-Public Use
  Company Number: None

PATIENT

DRUGS (2)
  1. MINOCYCLINE HCL 100 MG TABLET RANBAXY [Suspect]
     Active Substance: MINOCYCLINE HYDROCHLORIDE
     Indication: ARTHRITIS REACTIVE
     Route: 048
     Dates: start: 201405, end: 20140919
  2. CENTRUM MULTI-VITAMIN [Concomitant]

REACTIONS (3)
  - Rash [None]
  - Condition aggravated [None]
  - Raynaud^s phenomenon [None]

NARRATIVE: CASE EVENT DATE: 201408
